FAERS Safety Report 22167687 (Version 1)
Quarter: 2023Q2

REPORT INFORMATION
  Report Type: Report from Study
  Country: NO (occurrence: NO)
  Receive Date: 20230403
  Receipt Date: 20230403
  Transmission Date: 20230721
  Serious: Yes (Hospitalization)
  Sender: FDA-Public Use
  Company Number: NO-ABBVIE-19P-122-2778480-00

PATIENT
  Age: 53 Year
  Sex: Female

DRUGS (3)
  1. VENETOCLAX [Suspect]
     Active Substance: VENETOCLAX
     Indication: Chronic lymphocytic leukaemia
     Dosage: LAST DOSE OF DRUG BEFORE EVENT WAS ON 08 MAY 2019
     Route: 065
     Dates: start: 20190419
  2. IBRUTINIB [Suspect]
     Active Substance: IBRUTINIB
     Indication: Chronic lymphocytic leukaemia
     Route: 065
     Dates: start: 20190419, end: 20190508
  3. IBRUTINIB [Suspect]
     Active Substance: IBRUTINIB
     Indication: Chronic lymphocytic leukaemia
     Route: 065
     Dates: start: 20190524

REACTIONS (1)
  - Syncope [Recovered/Resolved]

NARRATIVE: CASE EVENT DATE: 20190508
